FAERS Safety Report 18714006 (Version 3)
Quarter: 2021Q1

REPORT INFORMATION
  Report Type: Spontaneous
  Country: US (occurrence: US)
  Receive Date: 20210107
  Receipt Date: 20210112
  Transmission Date: 20210419
  Serious: No
  Sender: FDA-Public Use
  Company Number: US-PFIZER INC-2021006412

PATIENT
  Age: 83 Year
  Sex: Male
  Weight: 73.94 kg

DRUGS (4)
  1. ELIQUIS [Concomitant]
     Active Substance: APIXABAN
     Indication: CARDIAC DISORDER
     Dosage: 5 MG, 2X/DAY (MAYBE TWO YEARS AGO NOW)
  2. VYNDAQEL [Suspect]
     Active Substance: TAFAMIDIS MEGLUMINE
     Indication: AMYLOIDOSIS
     Dosage: 200 MG, DAILY (50MG, 4 PILLS (TWO IN THE MORNING TWO AT NIGHT))
     Dates: start: 20200101
  3. METOPROLOL. [Concomitant]
     Active Substance: METOPROLOL
     Indication: CARDIAC DISORDER
     Dosage: 12.5 MG (1/2 TABLET, 25MG (CUTS IN HALF) 12.5MG)
     Dates: start: 2020
  4. VYNDAQEL [Suspect]
     Active Substance: TAFAMIDIS MEGLUMINE
     Indication: AMYLOIDOSIS SENILE
     Dosage: 80 MG
     Dates: end: 20210102

REACTIONS (4)
  - Overdose [Unknown]
  - Wrong strength [Unknown]
  - Peripheral swelling [Unknown]
  - Off label use [Unknown]

NARRATIVE: CASE EVENT DATE: 20200101
